FAERS Safety Report 6221377-0 (Version None)
Quarter: 2009Q2

REPORT INFORMATION
  Report Type: 
  Country: None (occurrence: None)
  Receive Date: 20090610
  Receipt Date: 20090603
  Transmission Date: 20091009
  Serious: Yes (Hospitalization, Other)
  Sender: FDA-Public Use
  Company Number: DE-ABBOTT-09P-062-0572006-00

PATIENT
  Sex: Female
  Weight: 90 kg

DRUGS (2)
  1. HUMIRA [Suspect]
     Indication: RHEUMATOID ARTHRITIS
     Route: 058
     Dates: start: 20090210, end: 20090414
  2. HUMIRA [Suspect]
     Dates: start: 20090526

REACTIONS (5)
  - HAEMATOMA [None]
  - INFLAMMATION OF WOUND [None]
  - LOCAL SWELLING [None]
  - POSTOPERATIVE WOUND INFECTION [None]
  - RHEUMATOID ARTHRITIS [None]
